FAERS Safety Report 5836005-3 (Version None)
Quarter: 2008Q3

REPORT INFORMATION
  Report Type: 
  Country: None (occurrence: None)
  Receive Date: 20080805
  Receipt Date: 20080725
  Transmission Date: 20090109
  Serious: Yes (Hospitalization)
  Sender: FDA-Public Use
  Company Number: GXKR2008GB07011

PATIENT
  Sex: Female

DRUGS (6)
  1. PREDNISOLONE [Suspect]
     Indication: EVANS SYNDROME
  2. CYCLOSPORINE [Suspect]
     Indication: EVANS SYNDROME
  3. MYCOPHENOLATE MOFETIL [Suspect]
     Indication: EVANS SYNDROME
  4. IMMUNE GLOBULIN (HUMAN) [Suspect]
     Indication: EVANS SYNDROME
  5. RITUXIMAB (RITUXIMAB) [Suspect]
     Indication: EVANS SYNDROME
     Dosage: 375 MG/M^2
  6. RITUXIMAB (RITUXIMAB) [Suspect]
     Indication: LYMPHOPROLIFERATIVE DISORDER
     Dosage: 375 MG/M^2

REACTIONS (9)
  - ANOREXIA [None]
  - BLOOD PRESSURE SYSTOLIC DECREASED [None]
  - BONE MARROW TRANSPLANT [None]
  - COUGH [None]
  - DILATATION VENTRICULAR [None]
  - LUNG INFILTRATION [None]
  - OXYGEN SATURATION DECREASED [None]
  - PULMONARY HYPERTENSION [None]
  - TRICUSPID VALVE INCOMPETENCE [None]
